FAERS Safety Report 8807218 (Version 6)
Quarter: 2012Q4

REPORT INFORMATION
  Report Type: 
  Country: US (occurrence: US)
  Receive Date: 20120925
  Receipt Date: 20121026
  Transmission Date: 20130627
  Serious: No
  Sender: FDA-Public Use
  Company Number: US-ASTRAZENECA-2012SE73054

PATIENT
  Age: 70 Year
  Sex: Male

DRUGS (8)
  1. PULMICORT FLEXHALER [Suspect]
     Indication: ASTHMA
     Route: 055
  2. PULMICORT FLEXHALER [Suspect]
     Indication: ASTHMA
     Dosage: 160-4.5, BID
     Route: 055
  3. PULMICORT FLEXHALER [Suspect]
     Indication: ASTHMA
     Route: 055
  4. SEREVENT [Concomitant]
     Indication: ASTHMA
  5. SPIRIVA [Concomitant]
     Indication: ASTHMA
  6. XOLAIR [Concomitant]
     Indication: ASTHMA
  7. ANTI-HISTAMINES [Concomitant]
  8. ALBUTEROL [Concomitant]

REACTIONS (11)
  - Asthma [Unknown]
  - Hyperhidrosis [Unknown]
  - Upper respiratory tract congestion [Unknown]
  - Productive cough [Unknown]
  - Activities of daily living impaired [Unknown]
  - Wheezing [Unknown]
  - Breath sounds abnormal [Unknown]
  - Myalgia [Unknown]
  - Musculoskeletal stiffness [Unknown]
  - Throat irritation [Unknown]
  - Intentional drug misuse [Unknown]
